FAERS Safety Report 7775972-8 (Version None)
Quarter: 2011Q3

REPORT INFORMATION
  Report Type: 
  Country: None (occurrence: None)
  Receive Date: 20110923
  Receipt Date: 20110914
  Transmission Date: 20111222
  Serious: Yes (Hospitalization)
  Sender: FDA-Public Use
  Company Number: ZA-ASTRAZENECA-2011SE55867

PATIENT
  Age: 60 Year
  Sex: Male

DRUGS (2)
  1. CRESTOR [Suspect]
     Indication: HYPERCHOLESTEROLAEMIA
     Route: 048
     Dates: end: 20110905
  2. ATACAND HCT [Suspect]
     Indication: HYPERTENSION
     Route: 048
     Dates: end: 20110905

REACTIONS (2)
  - RASH [None]
  - SKIN LESION [None]
